FAERS Safety Report 5845179-X (Version None)
Quarter: 2008Q3

REPORT INFORMATION
  Report Type: 
  Country: None (occurrence: None)
  Receive Date: 20080814
  Receipt Date: 20080808
  Transmission Date: 20090109
  Serious: Yes (Life-Threatening, Hospitalization)
  Sender: FDA-Public Use
  Company Number: PHHY2008DE14364

PATIENT
  Age: 80 Year
  Sex: Female
  Weight: 55.3 kg

DRUGS (8)
  1. RASILEZ [Suspect]
     Indication: HYPERTENSION
     Dosage: 300 MG, QD
     Route: 048
     Dates: start: 20080703, end: 20080711
  2. ANTIHYPERTENSIVES [Concomitant]
  3. TRIAMTERENE AND HYDROCHLOROTHIAZIDE [Concomitant]
     Dosage: 25/12.5 MG/DAY
     Route: 048
     Dates: start: 20080703, end: 20080711
  4. PLAVIX [Concomitant]
     Dosage: 75 MG/D
     Route: 048
     Dates: start: 20080703
  5. INEGY [Concomitant]
     Dosage: 10/20 MG/D
  6. CARMEN [Concomitant]
     Dosage: 10 MG/D
     Route: 048
     Dates: start: 20080703
  7. BISOPROLOL FUMARATE [Concomitant]
  8. ASPIRIN [Concomitant]
     Dosage: 100 MG/D
     Route: 048
     Dates: start: 20080703

REACTIONS (2)
  - HYPOKALAEMIA [None]
  - HYPONATRAEMIA [None]
